FAERS Safety Report 5624440-8 (Version None)
Quarter: 2008Q1

REPORT INFORMATION
  Report Type: 
  Country: None (occurrence: None)
  Receive Date: 20080213
  Receipt Date: 20080130
  Transmission Date: 20080703
  Serious: Yes (Hospitalization)
  Sender: FDA-Public Use
  Company Number: US-TEVA-167135USA

PATIENT
  Age: 55 Year
  Sex: Male

DRUGS (1)
  1. AMOXICILLIN 250 MG + 500 MG CAPSULES [Suspect]
     Indication: PROPHYLAXIS
     Route: 048

REACTIONS (2)
  - MENINGITIS ASEPTIC [None]
  - TACHYCARDIA [None]
